FAERS Safety Report 6315302-1 (Version None)
Quarter: 2009Q3

REPORT INFORMATION
  Report Type: 
  Country: None (occurrence: None)
  Receive Date: 20090819
  Receipt Date: 20090813
  Transmission Date: 20100115
  Serious: Yes (Hospitalization)
  Sender: FDA-Public Use
  Company Number: US-JNJFOC-20090802571

PATIENT
  Age: 49 Year
  Sex: Male

DRUGS (6)
  1. INFLIXIMAB [Suspect]
     Indication: RHEUMATOID ARTHRITIS
     Route: 042
  2. PREDNISONE [Suspect]
     Indication: SKIN ULCER
  3. PREDNISONE [Suspect]
     Indication: BURSITIS
  4. ARAVA [Suspect]
     Indication: RHEUMATOID ARTHRITIS
  5. METHOTREXATE [Suspect]
     Indication: PSORIATIC ARTHROPATHY
  6. ENBREL [Suspect]
     Indication: RHEUMATOID ARTHRITIS

REACTIONS (1)
  - SPOROTRICHOSIS [None]
